FAERS Safety Report 10420229 (Version 1)
Quarter: 2014Q3

REPORT INFORMATION
  Report Type: Report from Study
  Country: US (occurrence: None)
  Receive Date: 20140804
  Receipt Date: 20140804
  Transmission Date: 20150326
  Serious: Yes (Hospitalization)
  Sender: FDA-Public Use
  Company Number: 2013US008746

PATIENT
  Age: 74 Year
  Sex: Female
  Weight: 61.2 kg

DRUGS (31)
  1. LOSARTAN (LOSARTAN) [Concomitant]
     Active Substance: LOSARTAN
  2. HYDROCODONE (HYDROCODONE) [Concomitant]
     Active Substance: HYDROCODONE
  3. PRADAXA [Concomitant]
     Active Substance: DABIGATRAN ETEXILATE MESYLATE
  4. NITROBID /00003201/ GLYCERYLTRINITRATE) [Concomitant]
  5. KLOR-CON [Concomitant]
     Active Substance: POTASSIUM CHLORIDE
  6. LEVEMIR [Concomitant]
     Active Substance: INSULIN DETEMIR
  7. GOBIODIA (GOBIODIA) [Concomitant]
  8. VITAMIN B12 NOS (VITAMIN B12 NOS) [Concomitant]
  9. ALBUTEROL /00139501/ (SALBTAMOL) [Concomitant]
  10. GLASSIA [Suspect]
     Active Substance: .ALPHA.1-PROTEINASE INHIBITOR HUMAN
     Indication: ALPHA-1 ANTI-TRYPSIN DEFICIENCY
     Dosage: 3600+/-10%, WEEKLY, INTRAVENOUS
     Route: 042
     Dates: start: 20130311
  11. GABAPENTIN (GABAPENTIN) [Concomitant]
     Active Substance: GABAPENTIN
  12. SINGULAIR [Concomitant]
     Active Substance: MONTELUKAST SODIUM
  13. FUROSEMIDE (FUROSEMIDE) [Concomitant]
     Active Substance: FUROSEMIDE
  14. FLONASE [Concomitant]
     Active Substance: FLUTICASONE PROPIONATE
  15. CARBIDOPA/LEVODOPA (CARBIDOPA, LEVODOPA) [Concomitant]
  16. ZOFRAN /00955301/ (ONDANSETRON) [Concomitant]
  17. DIGOXIN (DIGOXIN) [Concomitant]
     Active Substance: DIGOXIN
  18. PRILOSEC [Concomitant]
     Active Substance: OMEPRAZOLE MAGNESIUM
  19. MIRALAX /00754501/ (MACROGOL) [Concomitant]
  20. SPIRIVA [Concomitant]
     Active Substance: TIOTROPIUM BROMIDE MONOHYDRATE
  21. DILTIAZEM (DILTIAZEM) [Concomitant]
  22. KLONOPIN (CLONAZEPAM) [Concomitant]
  23. VITAMIN D NOS (VITAMIN D NOS) [Concomitant]
  24. NISTATIN (NYSTATIN) [Concomitant]
  25. PAXIL /00830802/ (PAROXETINE HYDROCHLORIDE) [Concomitant]
  26. METFORMIN [Concomitant]
     Active Substance: METFORMIN HYDROCHLORIDE
  27. CARDIZEM [Concomitant]
     Active Substance: DILTIAZEM HYDROCHLORIDE
  28. PROLROYUM (PROLROYUM) [Concomitant]
  29. MONTELUKAST [Concomitant]
     Active Substance: MONTELUKAST SODIUM
  30. PROBIOTICS [Concomitant]
     Active Substance: PROBIOTICS NOS
  31. ATORVASTATIN (ATORVASTATIN) [Concomitant]
     Active Substance: ATORVASTATIN

REACTIONS (2)
  - Pneumonia [None]
  - Chronic obstructive pulmonary disease [None]

NARRATIVE: CASE EVENT DATE: 20130906
